FAERS Safety Report 9253381 (Version 1)
Quarter: 2013Q2

REPORT INFORMATION
  Report Type: Spontaneous
  Country: CA (occurrence: CA)
  Receive Date: 20130425
  Receipt Date: 20130425
  Transmission Date: 20140414
  Serious: Yes (Other)
  Sender: FDA-Public Use
  Company Number: CA-AMGEN-CANSP2013028030

PATIENT
  Age: 76 Year
  Sex: Female
  Weight: 56.82 kg

DRUGS (1)
  1. PROLIA [Suspect]
     Indication: OSTEOPOROSIS POSTMENOPAUSAL
     Dosage: UNK
     Dates: start: 20121114

REACTIONS (7)
  - Ear disorder [Unknown]
  - Pain [Unknown]
  - Dizziness [Unknown]
  - Feeling cold [Unknown]
  - Dry skin [Unknown]
  - Dry mouth [Unknown]
  - Erythema [Unknown]
